FAERS Safety Report 8365914-9 (Version None)
Quarter: 2012Q2

REPORT INFORMATION
  Report Type: 
  Country: None (occurrence: None)
  Receive Date: 20120515
  Receipt Date: 20120515
  Transmission Date: 20120825
  Serious: No
  Sender: FDA-Public Use
  Company Number: None

PATIENT
  Age: 73 Year
  Sex: Female

DRUGS (1)
  1. ENBREL [Suspect]
     Dosage: 25MG QWEEK SQ
     Route: 058
     Dates: start: 20120330, end: 20120511

REACTIONS (1)
  - CONTUSION [None]
